FAERS Safety Report 11671090 (Version 1)
Quarter: 2015Q4

REPORT INFORMATION
  Report Type: Spontaneous
  Country: US (occurrence: US)
  Receive Date: 20151027
  Receipt Date: 20151027
  Transmission Date: 20160304
  Serious: No
  Sender: FDA-Public Use
  Company Number: US-ELI_LILLY_AND_COMPANY-US201005006392

PATIENT
  Sex: Male

DRUGS (1)
  1. FORTEO [Suspect]
     Active Substance: TERIPARATIDE
     Indication: OSTEOPOROSIS
     Dosage: 20 UG, DAILY (1/D)
     Dates: start: 20090101, end: 20100405

REACTIONS (7)
  - Tooth disorder [Unknown]
  - Gingival pain [Recovered/Resolved]
  - Appetite disorder [Recovering/Resolving]
  - Rash [Recovering/Resolving]
  - Gingival disorder [Recovered/Resolved]
  - Gingivitis [Recovered/Resolved]
  - Decreased appetite [Recovering/Resolving]
